FAERS Safety Report 6727614-8 (Version None)
Quarter: 2010Q2

REPORT INFORMATION
  Report Type: 
  Country: None (occurrence: None)
  Receive Date: 20100517
  Receipt Date: 20100517
  Transmission Date: 20101027
  Serious: Yes (Hospitalization)
  Sender: FDA-Public Use
  Company Number: None

PATIENT
  Sex: Female
  Weight: 12.7 kg

DRUGS (2)
  1. TYLENOL CHILDREN'S SUS 160MG/5CC MCNEIL [Suspect]
     Indication: EAR INFECTION
     Dosage: 160MG Q4-6H PO
     Route: 048
     Dates: start: 20100418
  2. TYLENOL CHILDREN'S SUS 160MG/5CC MCNEIL [Suspect]
     Indication: PYREXIA
     Dosage: 160MG Q4-6H PO
     Route: 048
     Dates: start: 20100418

REACTIONS (3)
  - FEBRILE CONVULSION [None]
  - POOR QUALITY DRUG ADMINISTERED [None]
  - PRODUCT QUALITY ISSUE [None]
